FAERS Safety Report 22024718 (Version 1)
Quarter: 2023Q1

REPORT INFORMATION
  Report Type: Report from Study
  Country: US (occurrence: US)
  Receive Date: 20230223
  Receipt Date: 20230223
  Transmission Date: 20230417
  Serious: Yes (Other)
  Sender: FDA-Public Use
  Company Number: US-AUROBINDO-AUR-APL-2023-008055

PATIENT
  Age: 36 Year
  Sex: Female

DRUGS (6)
  1. CYCLOPHOSPHAMIDE [Suspect]
     Active Substance: CYCLOPHOSPHAMIDE
     Indication: Thyroid cancer
     Dosage: UNK,DA-EPOCH-R ? 6 CYCLES IT MTX
     Route: 065
  2. PREDNISONE [Suspect]
     Active Substance: PREDNISONE
     Indication: Thyroid cancer
     Dosage: UNK,DA-EPOCH-R ? 6 CYCLES IT MTX
     Route: 065
  3. VINCRISTINE SULFATE [Suspect]
     Active Substance: VINCRISTINE SULFATE
     Indication: Thyroid cancer
     Dosage: UNK,DA-EPOCH-R ? 6 CYCLES IT MTX
     Route: 065
  4. DOXORUBICIN [Suspect]
     Active Substance: DOXORUBICIN
     Indication: Thyroid cancer
     Dosage: UNK,DA-EPOCH-R ? 6 CYCLES IT MTX
     Route: 065
  5. ETOPOSIDE [Suspect]
     Active Substance: ETOPOSIDE
     Indication: Thyroid cancer
     Dosage: UNK,DA-EPOCH-R ? 6 CYCLES IT MTX
     Route: 065
  6. RITUXIMAB [Suspect]
     Active Substance: RITUXIMAB
     Indication: Thyroid cancer
     Dosage: UNK,DA-EPOCH-R ? 6 CYCLES IT MTX
     Route: 065

REACTIONS (4)
  - Anosmia [Unknown]
  - Febrile neutropenia [Unknown]
  - Neutropenia [Unknown]
  - Parvovirus infection [Unknown]
